FAERS Safety Report 5755945-7 (Version None)
Quarter: 2008Q2

REPORT INFORMATION
  Report Type: 
  Country: None (occurrence: None)
  Receive Date: 20080602
  Receipt Date: 20080519
  Transmission Date: 20081010
  Serious: Yes (Life-Threatening)
  Sender: FDA-Public Use
  Company Number: FR-GENENTECH-261741

PATIENT
  Sex: Female

DRUGS (13)
  1. RITUXIMAB [Suspect]
     Indication: BURKITT'S LYMPHOMA
     Dosage: 611 MG, QD
     Route: 042
     Dates: start: 20070114
  2. CYTARABINE [Suspect]
     Indication: BURKITT'S LYMPHOMA
     Dosage: 152 MG, QD
     Route: 058
     Dates: start: 20070301
  3. CYCLOPHOSPHAMIDE [Suspect]
     Indication: BURKITT'S LYMPHOMA
     Dosage: 785 MG, QD
     Route: 042
     Dates: start: 20070107
  4. VINCRISTINE [Suspect]
     Indication: BURKITT'S LYMPHOMA
     Route: 042
     Dates: start: 20070107
  5. VINCRISTINE [Suspect]
     Dosage: 2 MG, UNK
     Route: 042
     Dates: start: 20070621
  6. PREDNISOLONE [Suspect]
     Indication: BURKITT'S LYMPHOMA
     Dosage: UNK, UNK
     Route: 048
     Dates: start: 20080107
  7. PREDNISOLONE [Suspect]
     Dosage: 55 MG, UNK
     Route: 048
     Dates: start: 20070601
  8. ETOPOSIDE [Suspect]
     Indication: BURKITT'S LYMPHOMA
     Route: 042
     Dates: start: 20070301
  9. ETOPOSIDE [Suspect]
     Dosage: 228 MG/5ML, UNK
     Route: 048
     Dates: start: 20070723, end: 20070725
  10. DOXORUBICIN HCL [Suspect]
     Indication: BURKITT'S LYMPHOMA
     Route: 042
     Dates: start: 20070114
  11. DOXORUBICIN HCL [Suspect]
     Dosage: 94 MG, UNK
     Route: 042
     Dates: start: 20070623
  12. METHOTREXATE [Suspect]
     Indication: BURKITT'S LYMPHOMA
     Route: 042
     Dates: start: 20070114
  13. METHOTREXATE [Suspect]
     Dosage: 4710 MG, UNK
     Route: 042
     Dates: start: 20070621

REACTIONS (1)
  - BLOOD DISORDER [None]
